FAERS Safety Report 13589253 (Version 1)
Quarter: 2017Q2

REPORT INFORMATION
  Report Type: Spontaneous
  Country: CH (occurrence: CH)
  Receive Date: 20170529
  Receipt Date: 20170529
  Transmission Date: 20170830
  Serious: Yes (Hospitalization)
  Sender: FDA-Public Use
  Company Number: CH-009507513-1705CHE012324

PATIENT
  Age: 88 Year
  Sex: Male

DRUGS (7)
  1. KEYTRUDA [Suspect]
     Active Substance: PEMBROLIZUMAB
     Indication: METASTASES TO LUNG
     Dosage: 2 MG/KG, UNK
     Dates: start: 20161228
  2. MINALGIN [Concomitant]
     Active Substance: METAMIZOLE
     Dosage: 500 MG, QID
     Route: 048
  3. MYDOCALM (TOLPERISONE HYDROCHLORIDE) [Concomitant]
     Active Substance: TOLPERISONE HYDROCHLORIDE
     Dosage: 150 MG, QD
  4. DENTOHEXIN [Concomitant]
     Dosage: 1 DF, BID
  5. KEYTRUDA [Suspect]
     Active Substance: PEMBROLIZUMAB
     Dosage: 2 MG/KG, UNK
     Dates: start: 20170118
  6. KEYTRUDA [Suspect]
     Active Substance: PEMBROLIZUMAB
     Indication: MALIGNANT MELANOMA
     Dosage: 2 MG/KG, UNK
     Dates: start: 20161207
  7. DUROGESIC [Concomitant]
     Active Substance: FENTANYL
     Dosage: 1 DF, Q3D

REACTIONS (1)
  - Hepatitis cholestatic [Recovering/Resolving]

NARRATIVE: CASE EVENT DATE: 20170118
